FAERS Safety Report 19319534 (Version 1)
Quarter: 2021Q2

REPORT INFORMATION
  Report Type: Spontaneous
  Country: US (occurrence: US)
  Receive Date: 20210528
  Receipt Date: 20210528
  Transmission Date: 20210717
  Serious: Yes (Disabling)
  Sender: FDA-Public Use
  Company Number: None

PATIENT
  Age: 40 Year
  Sex: Female
  Weight: 51.75 kg

DRUGS (1)
  1. BOTOX [Suspect]
     Active Substance: ONABOTULINUMTOXINA

REACTIONS (20)
  - Bruxism [None]
  - Akathisia [None]
  - Abnormal dreams [None]
  - Nervousness [None]
  - Dry mouth [None]
  - Hyperreflexia [None]
  - Weight decreased [None]
  - Skin burning sensation [None]
  - Anxiety [None]
  - Attention deficit hyperactivity disorder [None]
  - Dyspepsia [None]
  - Tremor [None]
  - Muscle twitching [None]
  - Diarrhoea [None]
  - Asthenia [None]
  - Odynophagia [None]
  - Paraesthesia [None]
  - Vomiting [None]
  - Alopecia [None]
  - Insomnia [None]

NARRATIVE: CASE EVENT DATE: 20190817
